FAERS Safety Report 8933053 (Version 1)
Quarter: 2012Q4

REPORT INFORMATION
  Report Type: 
  Country: US (occurrence: US)
  Receive Date: 20121128
  Receipt Date: 20121128
  Transmission Date: 20130627
  Serious: No
  Sender: FDA-Public Use
  Company Number: US-ASTRAZENECA-2012SE85727

PATIENT
  Sex: Female

DRUGS (4)
  1. PRILOSEC [Suspect]
     Route: 048
  2. PREMARIN [Suspect]
     Route: 065
  3. MAXIDEX [Suspect]
     Route: 065
  4. SYNTHROID [Suspect]
     Route: 065

REACTIONS (1)
  - Blood thyroid stimulating hormone increased [Unknown]
